FAERS Safety Report 7480748-5 (Version None)
Quarter: 2011Q2

REPORT INFORMATION
  Report Type: 
  Country: None (occurrence: None)
  Receive Date: 20110506
  Receipt Date: 20110419
  Transmission Date: 20111010
  Serious: Yes (Hospitalization)
  Sender: FDA-Public Use
  Company Number: MSER20110017

PATIENT
  Sex: Male
  Weight: 1730 kg

DRUGS (3)
  1. KANEURON (PHENIBARBITAL, CAFFEINE, CRATAEGUS LAEVIGATA EXTRACT, PASSIF [Suspect]
     Indication: PRODUCT USED FOR UNKNOWN INDICATION
     Dosage: 5 MG/KG, DAILY, INTRAVENOUS
     Route: 042
  2. SUBUTEX [Suspect]
     Indication: DRUG DEPENDENCE
     Dosage: 0.2 MG,1 IN 1 D, ORAL
     Route: 048
  3. MORPHINE SULFATE [Suspect]
     Indication: DRUG WITHDRAWAL SYNDROME
     Dosage: 0.5 MG/KG, DAILY, INTRAVENOUS
     Route: 042

REACTIONS (2)
  - CONVULSION NEONATAL [None]
  - WITHDRAWAL SYNDROME [None]
